FAERS Safety Report 21059341 (Version 1)
Quarter: 2022Q3

REPORT INFORMATION
  Report Type: Spontaneous
  Country: US (occurrence: None)
  Receive Date: 20220708
  Receipt Date: 20220708
  Transmission Date: 20221026
  Serious: No
  Sender: FDA-Public Use
  Company Number: None

PATIENT
  Age: 83 Year
  Sex: Male

DRUGS (1)
  1. LUPRON DEPOT [Suspect]
     Active Substance: LEUPROLIDE ACETATE
     Indication: Prostate cancer
     Dosage: OTHER FREQUENCY : EVERY 6 MONTHS;?
     Route: 030
     Dates: start: 20220623

REACTIONS (2)
  - Injection site pain [None]
  - Dyspnoea [None]
